FAERS Safety Report 13737816 (Version 1)
Quarter: 2017Q3

REPORT INFORMATION
  Report Type: Spontaneous
  Country: US (occurrence: US)
  Receive Date: 20170710
  Receipt Date: 20170710
  Transmission Date: 20171127
  Serious: Yes (Hospitalization, Other)
  Sender: FDA-Public Use
  Company Number: US-SAOL THERAPEUTICS-2016SAO00528

PATIENT
  Age: 59 Year
  Sex: Female
  Weight: 49.89 kg

DRUGS (18)
  1. MORPHINE [Suspect]
     Active Substance: MORPHINE
     Dosage: .202 MG\DAY
     Route: 037
     Dates: start: 20160819
  2. ZOFRAN [Concomitant]
     Active Substance: ONDANSETRON HYDROCHLORIDE
  3. AMBIEN [Concomitant]
     Active Substance: ZOLPIDEM TARTRATE
  4. LIPITOR [Concomitant]
     Active Substance: ATORVASTATIN CALCIUM
  5. LIORESAL [Suspect]
     Active Substance: BACLOFEN
     Dosage: 998 ?G, \DAY
     Route: 037
     Dates: start: 20160819
  6. NORCO [Concomitant]
     Active Substance: ACETAMINOPHEN\HYDROCODONE BITARTRATE
  7. DETROL [Concomitant]
     Active Substance: TOLTERODINE TARTRATE
  8. BACLOFEN. [Concomitant]
     Active Substance: BACLOFEN
  9. LIORESAL [Suspect]
     Active Substance: BACLOFEN
     Indication: MUSCLE SPASTICITY
     Dosage: UNK
     Route: 037
     Dates: start: 2001
  10. MORPHINE [Suspect]
     Active Substance: MORPHINE
     Dosage: UNK
     Route: 037
  11. PROZAC [Concomitant]
     Active Substance: FLUOXETINE HYDROCHLORIDE
  12. LIORESAL [Suspect]
     Active Substance: BACLOFEN
     Dosage: 808.8 ?G, \DAY
     Route: 037
     Dates: start: 20160819
  13. MORPHINE [Suspect]
     Active Substance: MORPHINE
     Dosage: 0.224 MG, \DAY
     Route: 037
     Dates: start: 20160721
  14. TRIMETHOPRIM. [Concomitant]
     Active Substance: TRIMETHOPRIM
  15. VITAMIN C [Concomitant]
     Active Substance: ASCORBIC ACID
  16. LIORESAL [Suspect]
     Active Substance: BACLOFEN
     Indication: MULTIPLE SCLEROSIS
     Dosage: 897.9 ?G, \DAY
     Route: 037
     Dates: start: 20160721
  17. MORPHINE [Suspect]
     Active Substance: MORPHINE
     Dosage: 0.24967 MG, \DAY
     Route: 037
     Dates: start: 20160819
  18. LOPRESSOR [Concomitant]
     Active Substance: METOPROLOL TARTRATE

REACTIONS (3)
  - Muscle spasticity [Recovering/Resolving]
  - Device failure [Recovering/Resolving]
  - Pain [Recovering/Resolving]

NARRATIVE: CASE EVENT DATE: 20160614
